FAERS Safety Report 18920869 (Version 2)
Quarter: 2022Q1

REPORT INFORMATION
  Report Type: Spontaneous
  Country: US (occurrence: US)
  Receive Date: 20210222
  Receipt Date: 20220222
  Transmission Date: 20220423
  Serious: No
  Sender: FDA-Public Use
  Company Number: US-ALLERGAN-2010461US

PATIENT
  Sex: Male

DRUGS (1)
  1. OZURDEX [Suspect]
     Active Substance: DEXAMETHASONE
     Indication: Vitreous adhesions
     Dosage: 0.7 MG, SINGLE
     Route: 031
     Dates: start: 20200304, end: 20200304

REACTIONS (4)
  - Injection site discomfort [Unknown]
  - Off label use [Unknown]
  - Complication of device insertion [Unknown]
  - Needle issue [Unknown]
